FAERS Safety Report 21946731 (Version 1)
Quarter: 2023Q1

REPORT INFORMATION
  Report Type: Spontaneous
  Country: US (occurrence: US)
  Receive Date: 20230202
  Receipt Date: 20230202
  Transmission Date: 20230417
  Serious: No
  Sender: FDA-Public Use
  Company Number: US-INCYTE CORPORATION-2022IN010245

PATIENT

DRUGS (13)
  1. OPZELURA [Suspect]
     Active Substance: RUXOLITINIB PHOSPHATE
     Indication: Eczema
     Dosage: 1.5 PERCENT
     Route: 065
     Dates: start: 202206, end: 202207
  2. PAXLOVID [Concomitant]
     Active Substance: NIRMATRELVIR\RITONAVIR
     Indication: Lyme disease
     Dosage: 6 PACK; TAKES 3 TABLETS IN THE MORNING AND 3 TABLETS AT NIGHT300MG; 100MG DOSE PACK
     Route: 065
     Dates: start: 20220701
  3. PAXLOVID [Concomitant]
     Active Substance: NIRMATRELVIR\RITONAVIR
     Dosage: UNK
     Route: 065
     Dates: start: 202208
  4. PAXLOVID [Concomitant]
     Active Substance: NIRMATRELVIR\RITONAVIR
     Dosage: UNK
     Route: 065
     Dates: start: 20220702, end: 20220706
  5. PAXLOVID [Concomitant]
     Active Substance: NIRMATRELVIR\RITONAVIR
     Dosage: UNK
     Route: 065
     Dates: start: 20220806, end: 20220820
  6. PAXLOVID [Concomitant]
     Active Substance: NIRMATRELVIR\RITONAVIR
     Dosage: UNK
     Route: 065
     Dates: start: 20220910
  7. METHSCOPOLAMINE BROMIDE [Concomitant]
     Active Substance: METHSCOPOLAMINE BROMIDE
     Indication: Crohn^s disease
     Dosage: 5 MILLIGRAM, BID
     Route: 065
  8. QUESTRAN [Concomitant]
     Active Substance: CHOLESTYRAMINE
     Indication: Deficiency of bile secretion
     Dosage: PACKET OF POWDER THAT HE PUTS IN LIQUID AND STIR AND SITS FOR 10 MIN
     Route: 065
     Dates: start: 1983
  9. ATORVASTATIN [Concomitant]
     Active Substance: ATORVASTATIN
     Indication: Blood cholesterol increased
     Dosage: STARTED AROUND 2014-2015
     Route: 065
  10. OLMESARTAN [Concomitant]
     Active Substance: OLMESARTAN
     Indication: Blood pressure measurement
     Dosage: IT^S 20MG EVEN THAT IS TOO MUCH SO HE CUTS IT IN HALF AND TAKES 10MG
     Route: 065
  11. LEVOTHYROXINE [Concomitant]
     Active Substance: LEVOTHYROXINE
     Indication: Hypothyroidism
     Dosage: STARTING DOSE WAS 87MCG
     Route: 065
  12. LEVOTHYROXINE [Concomitant]
     Active Substance: LEVOTHYROXINE
     Dosage: INCREASE AND DOSE NOW IS 112MCG ONCE A DAY FOR LAST YEAR OR TWO
     Route: 065
  13. NAPROSYN [Concomitant]
     Active Substance: NAPROXEN
     Indication: Pain
     Dosage: 500MG AS NEEDED
     Route: 065

REACTIONS (1)
  - Nasopharyngitis [Recovered/Resolved]
